FAERS Safety Report 4839809-9 (Version None)
Quarter: 2005Q4

REPORT INFORMATION
  Report Type: 
  Country: None (occurrence: None)
  Receive Date: 20051129
  Receipt Date: 20050928
  Transmission Date: 20060501
  Serious: No
  Sender: FDA-Public Use
  Company Number: US-GLAXOSMITHKLINE-A0576223A

PATIENT
  Sex: Male

DRUGS (5)
  1. WELLBUTRIN SR [Suspect]
     Indication: DRUG USE FOR UNKNOWN INDICATION
     Route: 048
  2. LAMICTAL [Concomitant]
  3. RELPAX [Concomitant]
  4. PROZAC [Concomitant]
  5. INDERAL LA [Concomitant]

REACTIONS (1)
  - DRUG ADMINISTRATION ERROR [None]
